FAERS Safety Report 15020511 (Version 1)
Quarter: 2018Q2

REPORT INFORMATION
  Report Type: Spontaneous
  Country: US (occurrence: US)
  Receive Date: 20180618
  Receipt Date: 20180618
  Transmission Date: 20180711
  Serious: Yes (Other)
  Sender: FDA-Public Use
  Company Number: US-SCIEGEN PHARMACEUTICALS INC-2018SCILIT00352

PATIENT
  Age: 25 Year
  Sex: Male

DRUGS (7)
  1. GABAPENTIN. [Concomitant]
     Active Substance: GABAPENTIN
     Indication: COMPLEX REGIONAL PAIN SYNDROME
     Dosage: 600 MG, TID
     Route: 065
  2. DICLOFENAC [Concomitant]
     Active Substance: DICLOFENAC
     Indication: COMPLEX REGIONAL PAIN SYNDROME
     Dosage: 75 MG, BID
     Route: 065
  3. TIZANIDINE. [Concomitant]
     Active Substance: TIZANIDINE
     Indication: COMPLEX REGIONAL PAIN SYNDROME
     Dosage: 4 MG, BID
     Route: 065
  4. LAMOTRIGINE TABLETS [Suspect]
     Active Substance: LAMOTRIGINE
     Indication: COMPLEX REGIONAL PAIN SYNDROME
     Dosage: 25 MG, BID
     Route: 065
  5. DULOXETINE. [Suspect]
     Active Substance: DULOXETINE
     Indication: COMPLEX REGIONAL PAIN SYNDROME
     Dosage: 30 MG IN THE MORNING AND 60 MG AT NIGHT
  6. ONDANSETRON [Suspect]
     Active Substance: ONDANSETRON
     Indication: NAUSEA
     Dosage: 4 MG FOR FIRST TWO DAYS
     Route: 042
  7. OXYCODONE [Concomitant]
     Active Substance: OXYCODONE
     Indication: COMPLEX REGIONAL PAIN SYNDROME
     Dosage: 10 MG, TID
     Route: 065

REACTIONS (2)
  - Product use in unapproved indication [None]
  - Serotonin syndrome [Recovered/Resolved]
